FAERS Safety Report 14258415 (Version 2)
Quarter: 2018Q3

REPORT INFORMATION
  Report Type: Spontaneous
  Country: US (occurrence: US)
  Receive Date: 20171207
  Receipt Date: 20180820
  Transmission Date: 20181010
  Serious: No
  Sender: FDA-Public Use
  Company Number: US-PFIZER INC-2017519111

PATIENT
  Age: 51 Year
  Sex: Female

DRUGS (2)
  1. IBRANCE [Suspect]
     Active Substance: PALBOCICLIB
     Dosage: 75 MG, CYCLIC (DAILY WITH FOOD FOR 21 DAYS ON AND 7 DAYS OFF)
     Route: 048
     Dates: start: 201712
  2. IBRANCE [Suspect]
     Active Substance: PALBOCICLIB
     Indication: BREAST CANCER FEMALE
     Dosage: 125 MG, CYCLIC (DAILY WITH FOOD FOR 21 DAYS ON AND 7 DAYS OFF)
     Route: 048

REACTIONS (8)
  - Hypoaesthesia [Unknown]
  - Cardiomegaly [Unknown]
  - Abdominal distension [Unknown]
  - Hiatus hernia [Unknown]
  - Intentional product misuse [Unknown]
  - Feeling abnormal [Unknown]
  - Bone disorder [Unknown]
  - Umbilical hernia [Unknown]
